FAERS Safety Report 24577873 (Version 1)
Quarter: 2024Q4

REPORT INFORMATION
  Report Type: Spontaneous
  Country: US (occurrence: US)
  Receive Date: 20241104
  Receipt Date: 20241104
  Transmission Date: 20250115
  Serious: Yes (Other)
  Sender: PURDUE
  Company Number: US-PURDUE PHARMA-USA-2024-0312970

PATIENT
  Sex: Male

DRUGS (1)
  1. OXYCONTIN [Suspect]
     Active Substance: OXYCODONE HYDROCHLORIDE
     Indication: Product used for unknown indication
     Dosage: TOOK FOR 10 YEARS
     Route: 048

REACTIONS (9)
  - Road traffic accident [Unknown]
  - Pneumothorax [Unknown]
  - Cardiac disorder [Unknown]
  - Near death experience [Unknown]
  - Suicide attempt [Unknown]
  - Overdose [Unknown]
  - Drug dependence [Recovered/Resolved]
  - Gun shot wound [Unknown]
  - Unevaluable event [Unknown]
